FAERS Safety Report 8475083-2 (Version None)
Quarter: 2012Q2

REPORT INFORMATION
  Report Type: 
  Country: None (occurrence: None)
  Receive Date: 20120622
  Receipt Date: 20120613
  Transmission Date: 20120825
  Serious: Yes (Death)
  Sender: FDA-Public Use
  Company Number: DKLU1082198

PATIENT
  Sex: Male

DRUGS (1)
  1. INDOCIN [Suspect]
     Indication: PRODUCT USED FOR UNKNOWN INDICATION
     Dosage: INTRAVENOUS (NOT OTHERWISE SPECIFIED)
     Route: 042

REACTIONS (3)
  - SHOCK HAEMORRHAGIC [None]
  - HEPATIC HAEMATOMA [None]
  - DEATH NEONATAL [None]
